FAERS Safety Report 9401095 (Version 2)
Quarter: 2013Q3

REPORT INFORMATION
  Report Type: Spontaneous
  Country: BR (occurrence: BR)
  Receive Date: 20130715
  Receipt Date: 20130828
  Transmission Date: 20140515
  Serious: Yes (Hospitalization, Other)
  Sender: FDA-Public Use
  Company Number: BR-ABBOTT-13X-020-1115006-00

PATIENT
  Sex: Male
  Weight: 72 kg

DRUGS (9)
  1. ATACAND HCT [Suspect]
     Indication: HYPERTENSION
     Dosage: CANDESARTAN CILEXETIL 16 MG/HYDROCHLOROTHIAZIDE 12.5 MG
     Route: 048
  2. OMEPRAZOLE [Suspect]
     Indication: GASTRIC DISORDER
     Route: 048
  3. LECTRUM [Suspect]
     Indication: PROSTATE CANCER
     Dates: start: 20090503, end: 20120329
  4. CASODEX [Suspect]
     Indication: PROSTATE CANCER
     Dosage: GEPEPROSTIN: 50 MG
     Route: 048
     Dates: start: 2007, end: 20090503
  5. ZOLADEX [Suspect]
     Indication: PROSTATE CANCER
     Route: 058
     Dates: start: 20120427
  6. ROSUVASTATIN [Suspect]
     Indication: BLOOD CHOLESTEROL INCREASED
     Route: 048
  7. GEPEPROSTIN [Suspect]
     Indication: PROSTATE CANCER
     Route: 048
     Dates: start: 2007, end: 20090503
  8. PRESSAT [Concomitant]
     Indication: HYPERTENSION
  9. PANTOPRAZOL [Concomitant]
     Indication: GASTRIC DISORDER

REACTIONS (4)
  - Pancreatitis [Unknown]
  - Diabetes mellitus [Unknown]
  - Malignant neoplasm progression [Not Recovered/Not Resolved]
  - Prostate cancer [Recovered/Resolved]
